FAERS Safety Report 5233189-5 (Version None)
Quarter: 2007Q1

REPORT INFORMATION
  Report Type: 
  Country: None (occurrence: None)
  Receive Date: 20070207
  Receipt Date: 20070126
  Transmission Date: 20070707
  Serious: Yes (Hospitalization, Other)
  Sender: FDA-Public Use
  Company Number: JP-PFIZER INC-2007008741

PATIENT
  Sex: Female
  Weight: 47 kg

DRUGS (7)
  1. PREDNISOLONE [Suspect]
     Indication: SYSTEMIC LUPUS ERYTHEMATOSUS
     Dosage: DAILY DOSE:40MG
  2. SERMION TABLET [Suspect]
     Indication: PROPHYLAXIS
     Route: 048
     Dates: start: 20060112, end: 20060120
  3. RISPERDAL [Suspect]
     Indication: CONFUSIONAL STATE
     Dosage: DAILY DOSE:2MG
     Route: 048
     Dates: start: 20051220
  4. OLANZAPINE [Concomitant]
     Route: 048
     Dates: start: 20060101
  5. GASMOTIN [Concomitant]
     Route: 048
  6. UBRETID [Concomitant]
     Route: 048
  7. ARTANE [Concomitant]
     Route: 048

REACTIONS (15)
  - BLOOD ALBUMIN DECREASED [None]
  - CEREBRAL ATROPHY [None]
  - CEREBRAL HYPOPERFUSION [None]
  - DEPRESSED LEVEL OF CONSCIOUSNESS [None]
  - DIET REFUSAL [None]
  - DYSPHAGIA [None]
  - DYSURIA [None]
  - HALLUCINATION, AUDITORY [None]
  - LACUNAR INFARCTION [None]
  - MEMORY IMPAIRMENT [None]
  - MIDDLE INSOMNIA [None]
  - PORIOMANIA [None]
  - PROTEINURIA [None]
  - PSYCHOTIC DISORDER [None]
  - TREATMENT NONCOMPLIANCE [None]
